FAERS Safety Report 10224622 (Version 2)
Quarter: 2014Q2

REPORT INFORMATION
  Report Type: Spontaneous
  Country: JP (occurrence: JP)
  Receive Date: 20140609
  Receipt Date: 20140616
  Transmission Date: 20141212
  Serious: Yes (Hospitalization)
  Sender: FDA-Public Use
  Company Number: JP-ROCHE-1413267

PATIENT
  Age: 60 Year
  Sex: Female
  Weight: 54 kg

DRUGS (10)
  1. AVASTIN [Suspect]
     Indication: BREAST CANCER METASTATIC
     Route: 041
     Dates: start: 20140521, end: 20140521
  2. PACLITAXEL [Suspect]
     Indication: BREAST CANCER METASTATIC
     Route: 041
     Dates: start: 20140521, end: 20140521
  3. DECADRON [Concomitant]
     Route: 065
  4. POLARAMINE [Concomitant]
     Route: 065
  5. GASTER (JAPAN) [Concomitant]
     Route: 065
  6. GLUCOSE [Concomitant]
     Route: 065
  7. LYRICA [Concomitant]
     Route: 048
  8. TSUMURA GOSHAJINKIGAN [Concomitant]
     Route: 048
  9. METHYCOBAL [Concomitant]
     Route: 065
  10. FAMOTIDINE D [Concomitant]
     Route: 048

REACTIONS (4)
  - Hepatic enzyme increased [Recovering/Resolving]
  - Platelet count decreased [Recovering/Resolving]
  - Protein urine present [Recovering/Resolving]
  - White blood cell count increased [Recovering/Resolving]
